FAERS Safety Report 21419874 (Version 1)
Quarter: 2022Q4

REPORT INFORMATION
  Report Type: Spontaneous
  Country: US (occurrence: None)
  Receive Date: 20221006
  Receipt Date: 20221006
  Transmission Date: 20230113
  Serious: Yes (Hospitalization)
  Sender: FDA-Public Use
  Company Number: None

PATIENT
  Sex: Male
  Weight: 70.3 kg

DRUGS (4)
  1. RADIUM RA-223 DICHLORIDE [Suspect]
     Active Substance: RADIUM RA-223 DICHLORIDE
     Dosage: OTHER QUANTITY : 109.0 MCI;?
     Dates: end: 20220418
  2. LUPRON [Concomitant]
     Active Substance: LEUPROLIDE ACETATE
  3. OXYCODONE [Concomitant]
     Active Substance: OXYCODONE
  4. ZOMETA [Concomitant]
     Active Substance: ZOLEDRONIC ACID

REACTIONS (5)
  - COVID-19 [None]
  - Fall [None]
  - Asthenia [None]
  - Hypotension [None]
  - Decreased appetite [None]

NARRATIVE: CASE EVENT DATE: 20220514
